FAERS Safety Report 18248355 (Version 1)
Quarter: 2020Q3

REPORT INFORMATION
  Report Type: Report from Study
  Country: ZA (occurrence: ZA)
  Receive Date: 20200909
  Receipt Date: 20200909
  Transmission Date: 20201103
  Serious: Yes (Other)
  Sender: FDA-Public Use
  Company Number: NVSC2020ZA233635

PATIENT
  Sex: Female

DRUGS (1)
  1. COSENTYX [Suspect]
     Active Substance: SECUKINUMAB
     Indication: ANKYLOSING SPONDYLITIS
     Dosage: 150 MG, QW
     Route: 058
     Dates: start: 20200821

REACTIONS (7)
  - Sinusitis [Unknown]
  - Pneumocystis jirovecii pneumonia [Unknown]
  - Fatigue [Unknown]
  - Headache [Unknown]
  - Rhinorrhoea [Unknown]
  - Influenza [Unknown]
  - Respiratory tract congestion [Unknown]
